FAERS Safety Report 25988610 (Version 1)
Quarter: 2025Q4

REPORT INFORMATION
  Report Type: Spontaneous
  Country: US (occurrence: US)
  Receive Date: 20251103
  Receipt Date: 20251103
  Transmission Date: 20260117
  Serious: No
  Sender: RIGEL PHARMACEUTICALS
  Company Number: US-BLUEPRINT MEDICINES CORPORATION-2024BUS004533

PATIENT
  Sex: Male

DRUGS (1)
  1. GAVRETO [Suspect]
     Active Substance: PRALSETINIB
     Indication: Thyroid cancer
     Dosage: 400 MILLIGRAM, QD
     Route: 048
     Dates: start: 20240803

REACTIONS (6)
  - Blood pressure increased [Unknown]
  - Anaemia [Unknown]
  - Blood sodium decreased [Unknown]
  - Oedema peripheral [Unknown]
  - Herpes zoster [Unknown]
  - Burning sensation [Unknown]
